FAERS Safety Report 7878605-5 (Version None)
Quarter: 2011Q4

REPORT INFORMATION
  Report Type: 
  Country: None (occurrence: None)
  Receive Date: 20111101
  Receipt Date: 20111101
  Transmission Date: 20120403
  Serious: Yes (Hospitalization)
  Sender: FDA-Public Use
  Company Number: None

PATIENT
  Sex: Female
  Weight: 51 kg

DRUGS (2)
  1. PRADAXA [Suspect]
     Indication: ATRIAL FIBRILLATION
     Dosage: 75 MG
     Route: 048
     Dates: start: 20111009, end: 20111027
  2. ASPIRIN [Concomitant]
     Route: 048

REACTIONS (2)
  - RENAL IMPAIRMENT [None]
  - GASTROINTESTINAL HAEMORRHAGE [None]
